FAERS Safety Report 16997032 (Version 2)
Quarter: 2021Q2

REPORT INFORMATION
  Report Type: Spontaneous
  Country: JP (occurrence: JP)
  Receive Date: 20191106
  Receipt Date: 20210401
  Transmission Date: 20210716
  Serious: Yes (Other)
  Sender: FDA-Public Use
  Company Number: JP-SUN PHARMACEUTICAL INDUSTRIES LTD-2019R1-226160

PATIENT
  Age: 33 Year
  Sex: Female

DRUGS (2)
  1. OESTROGEN (DIETHYLSTILBESTROL) [Suspect]
     Active Substance: DIETHYLSTILBESTROL
     Indication: OESTROGEN THERAPY
     Dosage: UNK (0.626 MILLIGRAM)
     Route: 065
  2. MEDROXYPROGESTERONE [Suspect]
     Active Substance: MEDROXYPROGESTERONE
     Indication: OESTROGEN THERAPY
     Dosage: UNK (5 MILLIGRAM)
     Route: 065

REACTIONS (1)
  - Pustular psoriasis [Recovering/Resolving]
